FAERS Safety Report 7816771-8 (Version None)
Quarter: 2011Q4

REPORT INFORMATION
  Report Type: 
  Country: None (occurrence: None)
  Receive Date: 20111013
  Receipt Date: 20111005
  Transmission Date: 20120403
  Serious: Yes (Hospitalization)
  Sender: FDA-Public Use
  Company Number: 1068364

PATIENT
  Age: 35 Year
  Sex: Female

DRUGS (4)
  1. NEUPOGEN [Suspect]
     Indication: BREAST CANCER
  2. CYCLOPHOSPHAMIDE [Suspect]
     Indication: BREAST CANCER
  3. PACLITAXEL [Suspect]
     Indication: BREAST CANCER
  4. DOXORUBICIN HCL [Concomitant]

REACTIONS (6)
  - OLIGOHYDRAMNIOS [None]
  - MATERNAL EXPOSURE DURING PREGNANCY [None]
  - CAESAREAN SECTION [None]
  - PREMATURE DELIVERY [None]
  - NEOPLASM PROGRESSION [None]
  - BREAST CANCER FEMALE [None]
